FAERS Safety Report 7399570-3 (Version None)
Quarter: 2011Q2

REPORT INFORMATION
  Report Type: 
  Country: None (occurrence: None)
  Receive Date: 20110407
  Receipt Date: 20110222
  Transmission Date: 20111010
  Serious: Yes (Hospitalization, Other)
  Sender: FDA-Public Use
  Company Number: US-BAYER-201025618NA

PATIENT
  Sex: Female
  Weight: 63.492 kg

DRUGS (41)
  1. CLONIDINE [Concomitant]
     Dosage: 0.2 MG, UNK
     Dates: start: 20060101
  2. CYMBALTA [Concomitant]
     Dosage: 60 MG, UNK
     Dates: start: 20060101
  3. PHENAZOPYRIDINE HCL TAB [Concomitant]
     Dosage: 100 MG, UNK
     Dates: start: 20070101
  4. VIGAMOX [Concomitant]
     Dosage: 0.5 %, UNK
     Dates: start: 20060101
  5. CEFUROXIME AXETIL [Concomitant]
     Dosage: 250 MG, UNK
     Dates: start: 20050101
  6. FLUCONAZOLE [Concomitant]
     Dosage: 100 MG, UNK
     Dates: start: 20060101
  7. HYDROMORPHONE HCL [Concomitant]
     Dosage: 2 MG, UNK
     Dates: start: 20070101
  8. IMMUNE GLOBULIN NOS [Concomitant]
     Indication: IMMUNE SYSTEM DISORDER
     Route: 042
  9. LACTULOSE [Concomitant]
     Dosage: 10 UNK, UNK
     Dates: start: 20060101
  10. NEPHROVITE [VIT C,VIT H,B5,B12,B9,B3,B6,B2,B1 HCL] [Concomitant]
     Indication: RENAL FAILURE
     Dosage: UNK
     Dates: start: 20060101
  11. YASMIN [Suspect]
     Dosage: UNK
     Route: 048
     Dates: start: 20050101, end: 20060101
  12. ALPRAZOLAM [Concomitant]
     Indication: ANXIETY
     Dosage: 0.5 MG, UNK
     Dates: start: 20060101
  13. DIURETICS [Concomitant]
  14. DOXAZOSIN MESYLATE [Concomitant]
     Dosage: 2 MG, UNK
     Dates: start: 20050101
  15. KEPPRA [Concomitant]
     Dosage: 500 MG, UNK
     Dates: start: 20060101
  16. LEXAPRO [Concomitant]
     Indication: DEPRESSION
     Dosage: 10 MG, UNK
     Dates: start: 20060101
  17. POTASSIUM [POTASSIUM] [Concomitant]
  18. SENSIPAR [Concomitant]
     Indication: PARATHYROID DISORDER
     Dosage: 30 MG, UNK
     Dates: start: 20060101
  19. VENTOLIN HFA [Concomitant]
     Dosage: 90 UNK, UNK
     Dates: start: 20070101
  20. PROTONIX [Concomitant]
     Indication: GASTROOESOPHAGEAL REFLUX DISEASE
     Dosage: 40 MG, UNK
     Dates: start: 20060101
  21. SEPTRA DS [Concomitant]
     Dosage: UNK
     Dates: start: 20060101
  22. UROCIT-K [Concomitant]
     Dosage: 10 MEQ, UNK
     Dates: start: 20060101
  23. YASMIN [Suspect]
     Indication: PRODUCT USED FOR UNKNOWN INDICATION
     Dosage: UNK
     Route: 048
     Dates: start: 20010401, end: 20040101
  24. CARTIA XT [Concomitant]
     Dosage: 120 MG, UNK
     Dates: start: 20060101
  25. LASIX [Concomitant]
     Dosage: 40 MG, UNK
     Dates: start: 20060101
  26. LEVAQUIN [Concomitant]
     Dosage: 250 MG, UNK
     Dates: start: 20060101
  27. LUPRON [Concomitant]
  28. NITROFURANTOIN [Concomitant]
     Dosage: 100 MG, UNK
     Dates: start: 20070101
  29. NITROGLYCERIN [Concomitant]
     Dosage: 0.4 MG/HR, UNK
     Dates: start: 20060101
  30. ATENOLOL [Concomitant]
     Dosage: 25 MG, UNK
     Dates: start: 20070101
  31. CEPHALEXIN [Concomitant]
     Dosage: 500 MG, UNK
     Dates: start: 20060101
  32. DIOVAN [Concomitant]
     Indication: BLOOD PRESSURE ABNORMAL
     Dosage: 320 MG, UNK
     Dates: start: 20060101
  33. HECTOROL [Concomitant]
     Indication: PARATHYROID DISORDER
     Dosage: 2.5 MG, UNK
     Dates: start: 20070101
  34. PERCOCET [Concomitant]
     Indication: PAIN
     Dosage: UNK
     Dates: start: 20060101
  35. REQUIP [Concomitant]
     Indication: RESTLESS LEGS SYNDROME
     Dosage: 0.25 MG, UNK
     Dates: start: 20060101
  36. DICLOXACILLIN [Concomitant]
     Dosage: 500 MG, UNK
     Dates: start: 20070101
  37. EPOGEN [Concomitant]
     Indication: RED BLOOD CELL ABNORMALITY
     Dosage: UNK
     Dates: start: 20060101
  38. RENAGEL [Concomitant]
     Indication: BLOOD PHOSPHORUS INCREASED
     Dosage: 800 MG, UNK
     Dates: start: 20060101
  39. SYNTHROID [Concomitant]
     Indication: THYROID DISORDER
     Dosage: 75 UNK, UNK
  40. TRAMADOL HCL [Concomitant]
     Dosage: 50 MG, UNK
     Dates: start: 20060101
  41. NSAID'S [Concomitant]

REACTIONS (8)
  - RENAL FAILURE [None]
  - GRAND MAL CONVULSION [None]
  - HAEMOLYTIC URAEMIC SYNDROME [None]
  - HYPERTENSION [None]
  - CEREBROVASCULAR ACCIDENT [None]
  - CHOLELITHIASIS [None]
  - NEPHROLITHIASIS [None]
  - CARDIAC FAILURE CONGESTIVE [None]
